FAERS Safety Report 4462130-8 (Version None)
Quarter: 2004Q3

REPORT INFORMATION
  Report Type: 
  Country: None (occurrence: None)
  Receive Date: 20040927
  Receipt Date: 20040927
  Transmission Date: 20050211
  Serious: Yes (Life-Threatening)
  Sender: FDA-Public Use
  Company Number: None

PATIENT
  Sex: Male

DRUGS (9)
  1. HUMALOG [Suspect]
     Indication: DIABETES MELLITUS
     Dosage: 4 UNITS TID SUBCUTANEOUS
     Route: 058
  2. LANTUS [Suspect]
     Indication: DIABETES MELLITUS
     Dosage: 10 UNITS HS SUBCUTANEOUS
     Route: 058
  3. METFORMIN [Concomitant]
  4. LISINOPRIL [Concomitant]
  5. OMEPRAZOLE [Concomitant]
  6. THIAMINE [Concomitant]
  7. SERTRALINE HCL [Concomitant]
  8. LEVETIRACETAM [Concomitant]
  9. BUSPIRONE [Concomitant]

REACTIONS (1)
  - HYPOGLYCAEMIA [None]
